FAERS Safety Report 10551290 (Version 1)
Quarter: 2014Q4

REPORT INFORMATION
  Report Type: Spontaneous
  Country: US (occurrence: None)
  Receive Date: 20141028
  Receipt Date: 20141028
  Transmission Date: 20150529
  Serious: Yes (Other)
  Sender: FDA-Public Use
  Company Number: None

PATIENT
  Age: 58 Year
  Sex: Female
  Weight: 58.06 kg

DRUGS (1)
  1. NATURAL ESTROGEN/ESTRIOL CREAM SMOKY MOUNTAIN NATURALS [Suspect]
     Active Substance: ESTRIOL
     Indication: ATROPHY
     Dosage: 4 TSP?2-3 TIMES/WEEK ?VAGINAL
     Route: 067
     Dates: start: 20140725, end: 20141005

REACTIONS (7)
  - Blood thyroid stimulating hormone decreased [None]
  - Hypertension [None]
  - Malaise [None]
  - Arthralgia [None]
  - Myalgia [None]
  - Blood triglycerides increased [None]
  - Headache [None]

NARRATIVE: CASE EVENT DATE: 20141009
